FAERS Safety Report 22367201 (Version 1)
Quarter: 2023Q2

REPORT INFORMATION
  Report Type: Spontaneous
  Country: US (occurrence: None)
  Receive Date: 20230524
  Receipt Date: 20230524
  Transmission Date: 20230722
  Serious: No
  Sender: FDA-Public Use
  Company Number: None

PATIENT
  Sex: Female

DRUGS (5)
  1. VERZENIO [Suspect]
     Active Substance: ABEMACICLIB
     Indication: Breast cancer female
     Dosage: FREQUENCY : DAILY;?
     Route: 048
  2. FISH OIL [Concomitant]
  3. MULTIVITAMIN [Concomitant]
  4. COREG [Concomitant]
  5. FASLODEX [Concomitant]

REACTIONS (2)
  - Malignant neoplasm progression [None]
  - Breast cancer female [None]
